FAERS Safety Report 7304863-1 (Version None)
Quarter: 2011Q1

REPORT INFORMATION
  Report Type: 
  Country: None (occurrence: None)
  Receive Date: 20110222
  Receipt Date: 20110211
  Transmission Date: 20110831
  Serious: Yes (Other)
  Sender: FDA-Public Use
  Company Number: NL-US-EMD SERONO, INC.-7027983

PATIENT
  Sex: Female
  Weight: 76 kg

DRUGS (5)
  1. LYRICA [Concomitant]
     Route: 048
     Dates: start: 20090801
  2. PARACETAMOL [Concomitant]
     Route: 048
  3. SUMATRIPTAN [Concomitant]
     Indication: MIGRAINE
     Route: 048
     Dates: start: 19910101
  4. REBIF [Suspect]
     Indication: MULTIPLE SCLEROSIS
     Route: 058
     Dates: start: 20101019, end: 20101114
  5. REBIF [Suspect]
     Route: 058
     Dates: start: 20101116, end: 20110130

REACTIONS (5)
  - PNEUMONIA [None]
  - INFLUENZA LIKE ILLNESS [None]
  - INSOMNIA [None]
  - SENSATION OF HEAVINESS [None]
  - PYREXIA [None]
